FAERS Safety Report 7302137-6 (Version None)
Quarter: 2011Q1

REPORT INFORMATION
  Report Type: 
  Country: None (occurrence: None)
  Receive Date: 20110218
  Receipt Date: 20110215
  Transmission Date: 20110831
  Serious: Yes (Life-Threatening, Hospitalization)
  Sender: FDA-Public Use
  Company Number: FI-MERCK-1102FIN00005

PATIENT
  Age: 48 Year
  Sex: Female

DRUGS (7)
  1. SIMVASTATIN [Concomitant]
     Indication: HYPERCHOLESTEROLAEMIA
     Route: 048
     Dates: end: 20101218
  2. SULFASALAZINE [Concomitant]
     Indication: COLITIS ULCERATIVE
     Route: 048
     Dates: end: 20101218
  3. JANUMET [Suspect]
     Indication: DIABETES MELLITUS
     Route: 048
     Dates: start: 20101020, end: 20101218
  4. AZATHIOPRINE [Concomitant]
     Indication: COLITIS ULCERATIVE
     Route: 048
     Dates: end: 20101218
  5. WARFARIN SODIUM [Concomitant]
     Indication: PULMONARY EMBOLISM
     Route: 048
     Dates: start: 20101103
  6. METFORMIN HYDROCHLORIDE [Suspect]
     Indication: DIABETES MELLITUS
     Route: 048
     Dates: end: 20101218
  7. ENALAPRIL MALEATE AND HYDROCHLOROTHIAZIDE [Concomitant]
     Indication: HYPERTENSION
     Route: 048
     Dates: end: 20101218

REACTIONS (3)
  - METABOLIC ACIDOSIS [None]
  - RENAL FAILURE ACUTE [None]
  - OFF LABEL USE [None]
